FAERS Safety Report 6739281-8 (Version None)
Quarter: 2010Q2

REPORT INFORMATION
  Report Type: 
  Country: None (occurrence: None)
  Receive Date: 20100525
  Receipt Date: 20100512
  Transmission Date: 20101027
  Serious: Yes (Other)
  Sender: FDA-Public Use
  Company Number: PHHY2010SI31006

PATIENT
  Sex: Female

DRUGS (2)
  1. GLEEVEC [Suspect]
     Indication: CHRONIC MYELOID LEUKAEMIA
     Dosage: 400 MG, QD
     Route: 048
     Dates: start: 20060101
  2. GLEEVEC [Suspect]
     Dosage: 200 MG, QD
     Route: 048

REACTIONS (2)
  - HYPERPARATHYROIDISM [None]
  - HYPOPHOSPHATAEMIA [None]
